FAERS Safety Report 4637572-8 (Version None)
Quarter: 2005Q2

REPORT INFORMATION
  Report Type: 
  Country: None (occurrence: None)
  Receive Date: 20050418
  Receipt Date: 20050406
  Transmission Date: 20051028
  Serious: Yes (Hospitalization)
  Sender: FDA-Public Use
  Company Number: FR-BOEHRINGER INGELHEIM PHARMACEUTICALS, INC.-2005-FF-00245FF

PATIENT
  Age: 90 Year
  Sex: Female
  Weight: 40 kg

DRUGS (11)
  1. ATROVENT [Suspect]
     Route: 055
     Dates: start: 20050207, end: 20050213
  2. SURBRONC [Suspect]
     Route: 048
     Dates: start: 20050202, end: 20050208
  3. PERFALGAN [Concomitant]
     Route: 042
     Dates: start: 20050131, end: 20050207
  4. TAZOCILLINE [Concomitant]
     Route: 042
     Dates: start: 20050207, end: 20050209
  5. LOVENOX [Concomitant]
     Route: 058
     Dates: start: 20050119, end: 20050221
  6. TAVANIC [Concomitant]
     Route: 042
     Dates: start: 20050202, end: 20050204
  7. TAVANIC [Concomitant]
     Route: 048
     Dates: start: 20050205, end: 20050207
  8. RISPERDAL [Concomitant]
     Route: 048
     Dates: start: 20050127, end: 20050218
  9. BRICANYL [Concomitant]
     Route: 048
     Dates: start: 20050207, end: 20050213
  10. FORADIL [Concomitant]
     Route: 055
     Dates: start: 20050118, end: 20050207
  11. ERYTHROMYCIN [Concomitant]
     Route: 042
     Dates: start: 20050207, end: 20050213

REACTIONS (1)
  - THROMBOCYTOPENIA [None]
